FAERS Safety Report 11571814 (Version 1)
Quarter: 2015Q3

REPORT INFORMATION
  Report Type: Spontaneous
  Country: US (occurrence: US)
  Receive Date: 20150916
  Receipt Date: 20150916
  Transmission Date: 20151125
  Serious: No
  Sender: FDA-Public Use
  Company Number: US-ELI_LILLY_AND_COMPANY-US200910000189

PATIENT
  Sex: Male

DRUGS (1)
  1. FORTEO [Suspect]
     Active Substance: TERIPARATIDE
     Dates: start: 20090828, end: 20090915

REACTIONS (4)
  - Frequent bowel movements [Recovered/Resolved]
  - Abdominal pain upper [Recovered/Resolved]
  - Functional gastrointestinal disorder [Recovered/Resolved]
  - Faeces soft [Recovered/Resolved]

NARRATIVE: CASE EVENT DATE: 2009
